FAERS Safety Report 9445918 (Version 1)
Quarter: 2013Q3

REPORT INFORMATION
  Report Type: Spontaneous
  Country: NG (occurrence: NG)
  Receive Date: 20130807
  Receipt Date: 20130807
  Transmission Date: 20140515
  Serious: Yes (Hospitalization, Other)
  Sender: FDA-Public Use
  Company Number: NG-ROCHE-1257633

PATIENT
  Sex: Female
  Weight: 60 kg

DRUGS (7)
  1. MABTHERA [Suspect]
     Indication: PRODUCT USED FOR UNKNOWN INDICATION
     Route: 065
     Dates: start: 20130510
  2. CYCLOPHOSPHAMIDE [Concomitant]
     Indication: LYMPHOMA
     Route: 042
     Dates: start: 20130510
  3. DOXORUBICIN [Concomitant]
     Indication: LYMPHOMA
     Route: 042
     Dates: start: 20130510
  4. ONCOVIN [Concomitant]
     Indication: LYMPHOMA
     Route: 042
     Dates: start: 20130510
  5. PREDNISONE [Concomitant]
     Indication: LYMPHOMA
     Route: 048
     Dates: start: 20130510
  6. PHENERGAN [Concomitant]
     Indication: PROPHYLAXIS
     Route: 030
     Dates: start: 20130510
  7. ACETAMINOPHEN [Concomitant]
     Indication: PROPHYLAXIS
     Route: 030
     Dates: start: 20130510

REACTIONS (2)
  - Procedural hypotension [Recovered/Resolved]
  - Thrombophlebitis [Recovering/Resolving]
